FAERS Safety Report 8576421-2 (Version None)
Quarter: 2012Q3

REPORT INFORMATION
  Report Type: 
  Country: None (occurrence: None)
  Receive Date: 20120725
  Receipt Date: 20120711
  Transmission Date: 20120928
  Serious: Yes (Other)
  Sender: FDA-Public Use
  Company Number: 2010MA003615

PATIENT
  Sex: Female
  Weight: 56.6996 kg

DRUGS (37)
  1. HYDROCHLOROTHIAZIDE [Concomitant]
  2. NEXIUM [Concomitant]
  3. TRAZODONE HYDROCHLORIDE [Concomitant]
  4. ALBUTEROL  ` [Concomitant]
  5. ASPIRIN [Concomitant]
  6. IMODIUM [Concomitant]
  7. CALCIUM CARBONATE [Concomitant]
  8. ALLEGRA [Concomitant]
  9. ANTIHISTAMINES [Concomitant]
  10. AXID [Concomitant]
  11. LEVOTHYROXINE SODIUM [Concomitant]
  12. LODINE [Concomitant]
  13. SINEMET [Concomitant]
  14. ZANTAC [Concomitant]
  15. LORAZEPAM [Concomitant]
  16. PENICILLIN [Concomitant]
  17. PEPCID [Concomitant]
  18. PRILOSEC [Concomitant]
  19. VICODIN [Concomitant]
  20. COMPAZINE [Concomitant]
  21. LEXAPRO [Concomitant]
  22. M.V.I. [Concomitant]
  23. RELAFEN [Concomitant]
  24. VAGINAL CREAM [Concomitant]
  25. WELLBUTRIN [Concomitant]
  26. METOCLOPRAMIDE [Suspect]
     Indication: GASTROOESOPHAGEAL REFLUX DISEASE
     Dosage: 10 MG; BID; PO
     Route: 048
     Dates: start: 20030409, end: 20060801
  27. FLUTICASONE PROPIONATE [Concomitant]
  28. ARICEPT [Concomitant]
  29. CARAFATE [Concomitant]
  30. LEVSIN [Concomitant]
  31. BISMUTH SUBSALICYLATE [Concomitant]
  32. PROTONIX [Concomitant]
  33. DOXYCYCLINE HCL [Concomitant]
  34. HYOSCYAMINE [Concomitant]
  35. PREMPRO [Concomitant]
  36. ACIPHEX [Concomitant]
  37. ATIVAN [Concomitant]

REACTIONS (29)
  - DIVERTICULUM [None]
  - HYPOTHYROIDISM [None]
  - INTERVERTEBRAL DISC DISORDER [None]
  - ANXIETY [None]
  - DEPRESSION [None]
  - OESOPHAGITIS [None]
  - RHINITIS ALLERGIC [None]
  - TARDIVE DYSKINESIA [None]
  - ABDOMINAL DISTENSION [None]
  - HAEMORRHOIDS [None]
  - COLITIS ISCHAEMIC [None]
  - GASTRITIS [None]
  - ARTHRALGIA [None]
  - ABDOMINAL PAIN [None]
  - RAYNAUD'S PHENOMENON [None]
  - TEARFULNESS [None]
  - ECONOMIC PROBLEM [None]
  - EMOTIONAL DISTRESS [None]
  - CHRONIC OBSTRUCTIVE PULMONARY DISEASE [None]
  - AFFECTIVE DISORDER [None]
  - FATIGUE [None]
  - MUSCULOSKELETAL DISCOMFORT [None]
  - OSTEOARTHRITIS [None]
  - DIARRHOEA [None]
  - HYPERTENSION [None]
  - DYSPHONIA [None]
  - HAEMATOCHEZIA [None]
  - GASTROOESOPHAGEAL REFLUX DISEASE [None]
  - TREMOR [None]
